FAERS Safety Report 24217555 (Version 2)
Quarter: 2024Q4

REPORT INFORMATION
  Report Type: Spontaneous
  Country: DE (occurrence: DE)
  Receive Date: 20240816
  Receipt Date: 20241104
  Transmission Date: 20250114
  Serious: Yes (Life-Threatening, Hospitalization, Other)
  Sender: PFIZER
  Company Number: DE-PFIZER INC-PV202400105875

PATIENT

DRUGS (2)
  1. GEMTUZUMAB OZOGAMICIN [Suspect]
     Active Substance: GEMTUZUMAB OZOGAMICIN
     Dosage: INDUCTION I FROM DAY 4
  2. DAUNORUBICIN HYDROCHLORIDE [Suspect]
     Active Substance: DAUNORUBICIN HYDROCHLORIDE
     Dosage: INDUCTION I

REACTIONS (8)
  - Incarcerated inguinal hernia [Unknown]
  - Ileus [Unknown]
  - Pulmonary embolism [Unknown]
  - Pneumocystis jirovecii pneumonia [Unknown]
  - Acute sinusitis [Unknown]
  - Tumour lysis syndrome [Unknown]
  - Haematuria [Unknown]
  - Urine output decreased [Unknown]

NARRATIVE: CASE EVENT DATE: 20240604
